FAERS Safety Report 8832967 (Version 1)
Quarter: 2012Q4

REPORT INFORMATION
  Report Type: 
  Country: US (occurrence: US)
  Receive Date: 20121010
  Receipt Date: 20121010
  Transmission Date: 20130627
  Serious: No
  Sender: FDA-Public Use
  Company Number: US-B.I. PHARMACEUTICALS,INC./RIDGEFIELD-2012-BP-23848BP

PATIENT

DRUGS (1)
  1. PRADAXA [Suspect]
     Dates: start: 2012

REACTIONS (1)
  - Atrial thrombosis [Recovered/Resolved]
